FAERS Safety Report 9045038 (Version 1)
Quarter: 2013Q1

REPORT INFORMATION
  Report Type: Spontaneous
  Country: US (occurrence: US)
  Receive Date: 20130130
  Receipt Date: 20130130
  Transmission Date: 20140127
  Serious: No
  Sender: FDA-Public Use
  Company Number: US-ABBOTT-12P-163-0968393-00

PATIENT
  Age: 60 None
  Sex: Female
  Weight: 59.02 kg

DRUGS (2)
  1. HUMIRA 40 MG/0.8 ML PEN [Suspect]
     Indication: COLITIS ULCERATIVE
     Dosage: LOADING DOSE
     Dates: start: 20120723, end: 20120723
  2. HUMIRA 40 MG/0.8 ML PEN [Suspect]
     Dosage: SECOND LOADING DOSE
     Dates: start: 20120806, end: 20120806

REACTIONS (4)
  - Off label use [Not Recovered/Not Resolved]
  - Injection site pain [Not Recovered/Not Resolved]
  - Incorrect dose administered [Unknown]
  - Injection site pain [Unknown]
